FAERS Safety Report 5355716-X (Version None)
Quarter: 2007Q2

REPORT INFORMATION
  Report Type: 
  Country: None (occurrence: None)
  Receive Date: 20070613
  Receipt Date: 20070606
  Transmission Date: 20071010
  Serious: Yes (Hospitalization, Other)
  Sender: FDA-Public Use
  Company Number: AU-AVENTIS-200715140GDDC

PATIENT
  Age: 74 Year
  Sex: Male

DRUGS (2)
  1. LANTUS [Suspect]
     Indication: DIABETES MELLITUS
     Dosage: DOSE QUANTITY: 26
     Route: 058
     Dates: start: 20060201
  2. AUTOPEN INSULIN INJECTION PEN [Suspect]
     Route: 058

REACTIONS (2)
  - CARDIAC DISORDER [None]
  - CONDITION AGGRAVATED [None]
